FAERS Safety Report 21503065 (Version 1)
Quarter: 2022Q4

REPORT INFORMATION
  Report Type: Spontaneous
  Country: US (occurrence: US)
  Receive Date: 20221025
  Receipt Date: 20221025
  Transmission Date: 20230113
  Serious: No
  Sender: FDA-Public Use
  Company Number: US-MYLANLABS-2022M1113485

PATIENT
  Sex: Male
  Weight: 86.18 kg

DRUGS (3)
  1. ATORVASTATIN [Suspect]
     Active Substance: ATORVASTATIN
     Indication: Product used for unknown indication
     Dosage: UNK
     Route: 065
  2. PAXLOVID [Concomitant]
     Active Substance: NIRMATRELVIR\RITONAVIR
     Indication: COVID-19
     Dosage: 3 DOSAGE FORM, AM (3 TABLETS IN THE MORNING AND 3 EVENING)
     Route: 065
     Dates: start: 20220929, end: 20221004
  3. PAXLOVID [Concomitant]
     Active Substance: NIRMATRELVIR\RITONAVIR
     Dosage: 3 DOSAGE FORM, PM (3 TABLETS IN THE MORNING AND 3 EVENING)
     Route: 065
     Dates: start: 20220929, end: 20221004

REACTIONS (1)
  - Therapy interrupted [Unknown]
